FAERS Safety Report 20573085 (Version 13)
Quarter: 2024Q4

REPORT INFORMATION
  Report Type: Spontaneous
  Country: US (occurrence: US)
  Receive Date: 20220309
  Receipt Date: 20241104
  Transmission Date: 20250115
  Serious: Yes (Disabling, Other)
  Sender: ORGANON
  Company Number: US-ORGANON-O2203USA000722

PATIENT
  Sex: Female

DRUGS (7)
  1. SINGULAIR [Suspect]
     Active Substance: MONTELUKAST SODIUM
     Indication: Asthma
     Dosage: 10 MILLIGRAM, DAILY
     Route: 048
     Dates: start: 2000, end: 2021
  2. SINGULAIR [Suspect]
     Active Substance: MONTELUKAST SODIUM
     Dosage: 1 TABLET, 10 MILLIGRAM, QD
     Route: 048
     Dates: start: 20150120
  3. AZITHROMYCIN [Concomitant]
     Active Substance: AZITHROMYCIN
     Dosage: 500 MILLIGRAM, QD
     Route: 048
     Dates: start: 20150120
  4. FAMOTIDINE [Concomitant]
     Active Substance: FAMOTIDINE
     Dosage: 20 MILLIGRAM, Q12H
     Route: 048
     Dates: start: 20150120
  5. VITAMIN D3 [Concomitant]
     Active Substance: CHOLECALCIFEROL
     Dosage: 1 DOSAGE FORM, QD
     Route: 048
  6. CETIRIZINE [Concomitant]
     Active Substance: CETIRIZINE HYDROCHLORIDE
     Dosage: 1 DOSAGE FORM, QD
     Route: 048
  7. ZYRTEC [Concomitant]
     Active Substance: CETIRIZINE HYDROCHLORIDE
     Indication: Hypersensitivity
     Dosage: 10 MG BY MOUTH DAILY AS NEEDED
     Route: 048

REACTIONS (30)
  - Neuropsychological symptoms [Not Recovered/Not Resolved]
  - Confusional state [Not Recovered/Not Resolved]
  - Major depression [Not Recovered/Not Resolved]
  - Anxiety [Not Recovered/Not Resolved]
  - Depression [Not Recovered/Not Resolved]
  - Tremor [Not Recovered/Not Resolved]
  - Suicidal ideation [Unknown]
  - Attention deficit hyperactivity disorder [Not Recovered/Not Resolved]
  - Social avoidant behaviour [Unknown]
  - Weight fluctuation [Unknown]
  - Pain [Unknown]
  - Asthma [Unknown]
  - Stress [Unknown]
  - Chest pain [Unknown]
  - Generalised anxiety disorder [Unknown]
  - Depressed mood [Unknown]
  - Mood altered [Unknown]
  - Cognitive disorder [Unknown]
  - Disturbance in attention [Unknown]
  - Feeling guilty [Unknown]
  - Affective ambivalence [Recovering/Resolving]
  - Affective disorder [Unknown]
  - Agitation [Unknown]
  - Aneurysm [Unknown]
  - Stress [Unknown]
  - Irritability [Unknown]
  - Poor quality sleep [Unknown]
  - Tension [Unknown]
  - Disturbance in attention [Unknown]
  - Cyclothymic disorder [Unknown]

NARRATIVE: CASE EVENT DATE: 20000101
